FAERS Safety Report 5195675-6 (Version None)
Quarter: 2006Q4

REPORT INFORMATION
  Report Type: 
  Country: None (occurrence: None)
  Receive Date: 20061222
  Receipt Date: 20061222
  Transmission Date: 20070319
  Serious: Yes (Hospitalization)
  Sender: FDA-Public Use
  Company Number: None

PATIENT
  Sex: Female
  Weight: 75.09 kg

DRUGS (14)
  1. CYCLOPHOSPHAMIDE [Suspect]
     Dosage: 1080 MG
  2. DOXORUBICIN HYDROCHLORIDE [Suspect]
     Dosage: 108 MG
  3. AMBIEN [Concomitant]
  4. COZAAR [Concomitant]
  5. DIFLUNISAL [Concomitant]
  6. IMITREX [Concomitant]
  7. LEVOXYL [Concomitant]
  8. MOTRIN [Concomitant]
  9. NASONEX [Concomitant]
  10. NEXIUM [Concomitant]
  11. OXYTROL [Concomitant]
  12. RELPAX [Concomitant]
  13. TRAZODONE HCL [Concomitant]
  14. XANAX [Concomitant]

REACTIONS (6)
  - DYSPHAGIA [None]
  - LEUKOPENIA [None]
  - MUCOSAL INFLAMMATION [None]
  - NEUTROPENIA [None]
  - OESOPHAGITIS [None]
  - PHARYNGITIS [None]
